FAERS Safety Report 7287624 (Version 4)
Quarter: 2014Q2

REPORT INFORMATION
  Report Type: Spontaneous
  Country: US (occurrence: US)
  Receive Date: 20100222
  Receipt Date: 20140402
  Transmission Date: 20141212
  Serious: Yes (Other)
  Sender: FDA-Public Use
  Company Number: US-BAYER-201014045NA

PATIENT
  Age: 23 Year
  Sex: Female
  Weight: 82 kg

DRUGS (24)
  1. YAZ [Suspect]
     Indication: CONTRACEPTION
     Dosage: 1 U, QD
     Route: 048
     Dates: start: 200702, end: 200904
  2. VENTOLIN INHALER [Concomitant]
     Indication: ASTHMA
     Route: 065
     Dates: start: 200901
  3. PRENATAL [Concomitant]
     Route: 065
     Dates: start: 200904
  4. HYDROCORTISONE [Concomitant]
     Route: 065
     Dates: start: 200905
  5. GUAIFENESIN W/PSEUDOEPHEDRINE [Concomitant]
     Route: 065
     Dates: start: 200901
  6. DICLOXACILLIN [Concomitant]
     Route: 065
     Dates: start: 200905
  7. PROMETHAZINE [Concomitant]
     Route: 065
     Dates: start: 200905
  8. TYLENOL NOS [Concomitant]
     Indication: PAIN
     Route: 065
  9. TYLENOL NOS [Concomitant]
     Indication: HEADACHE
  10. VITAMINS NOS [Concomitant]
     Route: 065
     Dates: start: 200904
  11. SINGULAIR [Concomitant]
     Indication: ASTHMA
     Dates: start: 200802, end: 20081215
  12. SINGULAIR [Concomitant]
     Indication: ASTHMA
     Dosage: 10 MG, ONCE
     Route: 048
     Dates: start: 20091001
  13. SINGULAIR [Concomitant]
     Indication: ASTHMA
     Dosage: UNK
     Dates: start: 200802, end: 200910
  14. SINGULAIR [Concomitant]
     Indication: ASTHMA
     Dosage: 10 MG, QD
     Route: 048
  15. MUCINEX DM [Concomitant]
     Route: 065
     Dates: start: 200901
  16. I.V. SOLUTIONS [Concomitant]
  17. IBUPROFEN [Concomitant]
     Indication: PRODUCT USED FOR UNKNOWN INDICATION
     Dosage: UNK
     Dates: start: 20091001
  18. IBUPROFEN [Concomitant]
     Indication: PRODUCT USED FOR UNKNOWN INDICATION
     Dosage: 800 MG, TID
     Route: 048
  19. OXYCODONE [Concomitant]
     Indication: PAIN
     Dosage: UNK UNK, QID
     Route: 048
  20. PRENATAL MEDICATIONS [Concomitant]
     Route: 065
     Dates: start: 2006, end: 20060615
  21. PRENATAL MEDICATIONS [Concomitant]
     Dosage: UNK
     Dates: start: 2009, end: 200906
  22. INFLUENZA VACCINE INACTIVATED [Concomitant]
     Dosage: UNK
     Dates: start: 2006
  23. TYLENOL [PARACETAMOL] [Concomitant]
     Route: 065
  24. ALBUTEROL INHALER [Concomitant]
     Route: 065
     Dates: start: 2004

REACTIONS (9)
  - Cholelithiasis [None]
  - Pregnancy on oral contraceptive [None]
  - Abdominal pain [None]
  - Abdominal pain upper [None]
  - Nausea [None]
  - Vomiting [None]
  - Constipation [None]
  - Diarrhoea [None]
  - Drug ineffective [None]
